FAERS Safety Report 7307587-X (Version None)
Quarter: 2011Q1

REPORT INFORMATION
  Report Type: 
  Country: None (occurrence: None)
  Receive Date: 20110119
  Receipt Date: 20100719
  Transmission Date: 20110831
  Serious: Yes (Hospitalization)
  Sender: FDA-Public Use
  Company Number: A-US2010-38240

PATIENT
  Age: 68 Year
  Sex: Female

DRUGS (2)
  1. TRACLEER [Suspect]
     Indication: PULMONARY ARTERIAL HYPERTENSION
     Dosage: ORAL
     Route: 048
     Dates: start: 20071101
  2. TADALAFIL [Concomitant]

REACTIONS (3)
  - FATIGUE [None]
  - TRANSFUSION [None]
  - ANAEMIA [None]
